FAERS Safety Report 6735667-6 (Version None)
Quarter: 2010Q2

REPORT INFORMATION
  Report Type: 
  Country: None (occurrence: None)
  Receive Date: 20100521
  Receipt Date: 20100513
  Transmission Date: 20101027
  Serious: Yes (Hospitalization)
  Sender: FDA-Public Use
  Company Number: JP-JNJFOC-20091207484

PATIENT
  Sex: Female
  Weight: 34 kg

DRUGS (34)
  1. GOLIMUMAB [Suspect]
     Indication: RHEUMATOID ARTHRITIS
     Route: 058
  2. GOLIMUMAB [Suspect]
     Route: 058
  3. GOLIMUMAB [Suspect]
     Route: 058
  4. GOLIMUMAB [Suspect]
     Route: 058
  5. GOLIMUMAB [Suspect]
     Route: 058
  6. GOLIMUMAB [Suspect]
     Route: 058
  7. GOLIMUMAB [Suspect]
     Route: 058
  8. GOLIMUMAB [Suspect]
     Route: 058
  9. GOLIMUMAB [Suspect]
     Route: 058
  10. GOLIMUMAB [Suspect]
     Route: 058
  11. GOLIMUMAB [Suspect]
     Route: 058
  12. PLACEBO [Suspect]
     Indication: RHEUMATOID ARTHRITIS
  13. PLACEBO [Suspect]
  14. PLACEBO [Suspect]
  15. PLACEBO [Suspect]
  16. PLACEBO [Suspect]
  17. PLACEBO [Suspect]
  18. RHEUMATREX [Suspect]
     Indication: RHEUMATOID ARTHRITIS
     Route: 048
  19. PREDONINE [Suspect]
     Indication: RHEUMATOID ARTHRITIS
     Route: 048
  20. PREDNISOLONE [Suspect]
     Indication: RHEUMATOID ARTHRITIS
     Route: 048
  21. VOLTAREN [Suspect]
     Indication: SCIATICA
     Route: 054
  22. MILTAX [Suspect]
     Indication: SCIATICA
     Route: 003
  23. MILTAX [Suspect]
     Indication: RHEUMATOID ARTHRITIS
     Route: 003
  24. HYPEN [Suspect]
     Indication: RHEUMATOID ARTHRITIS
     Route: 048
  25. MUCOSTA [Concomitant]
     Indication: GASTROINTESTINAL DISORDER THERAPY
     Route: 048
  26. FOLIC ACID [Concomitant]
     Indication: PROPHYLAXIS
     Route: 048
  27. ONEALFA [Concomitant]
     Indication: OSTEOPOROSIS
     Route: 048
  28. KARY UNI [Concomitant]
     Indication: CATARACT
     Route: 031
  29. AZULENE [Concomitant]
     Indication: CATARACT
     Route: 031
  30. KENALOG [Concomitant]
     Indication: STOMATITIS
     Route: 049
  31. PURSENNID [Concomitant]
     Indication: CONSTIPATION
     Route: 048
  32. PURSENNID [Concomitant]
     Route: 048
  33. PROPETO [Concomitant]
     Indication: DRY SKIN PROPHYLAXIS
     Route: 061
  34. HALCION [Concomitant]
     Indication: INSOMNIA

REACTIONS (3)
  - GASTRIC ULCER [None]
  - HYDRONEPHROSIS [None]
  - SEPSIS [None]
